FAERS Safety Report 18431049 (Version 1)
Quarter: 2020Q4

REPORT INFORMATION
  Report Type: Spontaneous
  Country: IL (occurrence: IL)
  Receive Date: 20201027
  Receipt Date: 20201027
  Transmission Date: 20210114
  Serious: Yes (Other)
  Sender: FDA-Public Use
  Company Number: IL-MACLEODS PHARMACEUTICALS US LTD-MAC2020028727

PATIENT

DRUGS (5)
  1. OSELTAMIVIR 75MG [Suspect]
     Active Substance: OSELTAMIVIR
     Indication: H1N1 INFLUENZA
     Dosage: 75 MILLIGRAM, BID
     Route: 065
  2. ROXITHROMYCIN [Concomitant]
     Active Substance: ROXITHROMYCIN
     Indication: H1N1 INFLUENZA
     Dosage: UNK
     Route: 065
  3. OSELTAMIVIR 75MG [Suspect]
     Active Substance: OSELTAMIVIR
     Dosage: 75 MILLIGRAM, QID, DOSE WAS DOUBLED AFTER 24 HOURS OF THERAPY
     Route: 065
  4. OSELTAMIVIR 75MG [Suspect]
     Active Substance: OSELTAMIVIR
     Dosage: 75 MILLIGRAM, QD, DOSE BACK TO THE ORIGINAL DOSE THE NEXT DAY
     Route: 065
  5. FLUOXETINE [Suspect]
     Active Substance: FLUOXETINE HYDROCHLORIDE
     Indication: EATING DISORDER
     Dosage: UNK
     Route: 065

REACTIONS (3)
  - Bradycardia [Recovered/Resolved]
  - Presyncope [Unknown]
  - Dizziness [Unknown]
